FAERS Safety Report 16633188 (Version 1)
Quarter: 2019Q3

REPORT INFORMATION
  Report Type: Spontaneous
  Country: GB (occurrence: GB)
  Receive Date: 20190725
  Receipt Date: 20190725
  Transmission Date: 20191004
  Serious: Yes (Other)
  Sender: FDA-Public Use
  Company Number: GB-AMGEN-GBRSP2019067639

PATIENT
  Age: 49 Year
  Sex: Male

DRUGS (1)
  1. AMGEVITA [Suspect]
     Active Substance: ADALIMUMAB
     Indication: ANKYLOSING SPONDYLITIS
     Dosage: 40 MILLIGRAM, Q2WK
     Route: 065
     Dates: start: 201903

REACTIONS (3)
  - Myalgia [Not Recovered/Not Resolved]
  - Ankylosing spondylitis [Unknown]
  - Therapeutic product effect incomplete [Unknown]
